FAERS Safety Report 5487254-8 (Version None)
Quarter: 2007Q4

REPORT INFORMATION
  Report Type: 
  Country: None (occurrence: None)
  Receive Date: 20071015
  Receipt Date: 20070928
  Transmission Date: 20080405
  Serious: Yes (Hospitalization)
  Sender: FDA-Public Use
  Company Number: 20070241 /

PATIENT
  Age: 9 Year
  Sex: Male

DRUGS (1)
  1. VENOFER (IRON SUCROSE INJECTION, USP) (2340-10) VENOFER (IRON SUCROSE [Suspect]

REACTIONS (2)
  - PULMONARY EMBOLISM [None]
  - THROMBOSIS [None]
